FAERS Safety Report 15840307 (Version 1)
Quarter: 2019Q1

REPORT INFORMATION
  Report Type: Spontaneous
  Country: US (occurrence: US)
  Receive Date: 20190117
  Receipt Date: 20190117
  Transmission Date: 20190417
  Serious: No
  Sender: FDA-Public Use
  Company Number: US-JNJFOC-20181218356

PATIENT
  Age: 46 Year
  Sex: Female
  Weight: 51.71 kg

DRUGS (12)
  1. REMICADE [Suspect]
     Active Substance: INFLIXIMAB
     Indication: ARTHRALGIA
     Dosage: EVERY 6 TO 7 WEEKS
     Route: 042
     Dates: start: 201711, end: 20181119
  2. PENTASA [Concomitant]
     Active Substance: MESALAMINE
     Route: 048
  3. FLONASE [Concomitant]
     Active Substance: FLUTICASONE PROPIONATE
     Route: 065
  4. REMICADE [Suspect]
     Active Substance: INFLIXIMAB
     Indication: CROHN^S DISEASE
     Dosage: EVERY 6 TO 7 WEEKS
     Route: 042
     Dates: start: 201711, end: 20181119
  5. HYDROCHLOROTHIAZIDE. [Concomitant]
     Active Substance: HYDROCHLOROTHIAZIDE
     Route: 048
  6. CELEXA [Concomitant]
     Active Substance: CITALOPRAM HYDROBROMIDE
     Route: 048
  7. VALTREX [Concomitant]
     Active Substance: VALACYCLOVIR HYDROCHLORIDE
     Route: 048
  8. REMICADE [Suspect]
     Active Substance: INFLIXIMAB
     Indication: RASH
     Dosage: EVERY 6 TO 7 WEEKS
     Route: 042
     Dates: start: 201711, end: 20181119
  9. PROTONIX [Concomitant]
     Active Substance: PANTOPRAZOLE SODIUM
     Route: 048
  10. LOVAZA [Concomitant]
     Active Substance: OMEGA-3-ACID ETHYL ESTERS
     Route: 048
  11. LOSARTAN. [Concomitant]
     Active Substance: LOSARTAN
     Route: 048
  12. REMICADE [Suspect]
     Active Substance: INFLIXIMAB
     Indication: SWELLING
     Dosage: EVERY 6 TO 7 WEEKS
     Route: 042
     Dates: start: 201711, end: 20181119

REACTIONS (12)
  - Pharyngeal oedema [Recovered/Resolved]
  - Ear disorder [Recovered/Resolved]
  - Drug hypersensitivity [Not Recovered/Not Resolved]
  - Hypoacusis [Not Recovered/Not Resolved]
  - Oropharyngeal pain [Recovered/Resolved]
  - Tinnitus [Recovered/Resolved]
  - Rash [Not Recovered/Not Resolved]
  - Off label use [Unknown]
  - Product use issue [Unknown]
  - Cough [Recovered/Resolved]
  - Swollen tongue [Not Recovered/Not Resolved]
  - Infusion related reaction [Recovered/Resolved]

NARRATIVE: CASE EVENT DATE: 201711
